FAERS Safety Report 9614220 (Version 1)
Quarter: 2013Q4

REPORT INFORMATION
  Report Type: Spontaneous
  Country: US (occurrence: US)
  Receive Date: 20131011
  Receipt Date: 20131011
  Transmission Date: 20140711
  Serious: No
  Sender: FDA-Public Use
  Company Number: US-009507513-1310USA001587

PATIENT
  Age: 50 Year
  Sex: Female
  Weight: 72.56 kg

DRUGS (14)
  1. VICTRELIS [Suspect]
     Indication: HEPATITIS C
     Dosage: 800 MG, TID
     Route: 048
     Dates: start: 20130725
  2. PEGASYS [Suspect]
  3. REBETOL [Suspect]
     Route: 048
  4. AMLODIPINE [Concomitant]
  5. CALCIUM (UNSPECIFIED) [Concomitant]
  6. UBIDECARENONE [Concomitant]
  7. CRANBERRY [Concomitant]
  8. FLAXSEED [Concomitant]
  9. MS CONTIN [Concomitant]
  10. VITAMINS (UNSPECIFIED) [Concomitant]
  11. OXYCODONE [Concomitant]
  12. PRISTIQ [Concomitant]
  13. CHOLECALCIFEROL [Concomitant]
  14. ZESTRIL [Concomitant]

REACTIONS (11)
  - Ear congestion [Not Recovered/Not Resolved]
  - Breast tenderness [Not Recovered/Not Resolved]
  - Hot flush [Not Recovered/Not Resolved]
  - No therapeutic response [Unknown]
  - Pruritus [Not Recovered/Not Resolved]
  - Headache [Not Recovered/Not Resolved]
  - Asthenia [Not Recovered/Not Resolved]
  - Fatigue [Not Recovered/Not Resolved]
  - Nausea [Not Recovered/Not Resolved]
  - Decreased appetite [Not Recovered/Not Resolved]
  - Muscle spasms [Not Recovered/Not Resolved]
